FAERS Safety Report 5292261-4 (Version None)
Quarter: 2007Q2

REPORT INFORMATION
  Report Type: 
  Country: None (occurrence: None)
  Receive Date: 20070410
  Receipt Date: 20070329
  Transmission Date: 20071010
  Serious: Yes (Hospitalization)
  Sender: FDA-Public Use
  Company Number: GB-SANOFI-SYNTHELABO-F01200700334

PATIENT
  Age: 70 Year
  Sex: Male
  Weight: 83 kg

DRUGS (11)
  1. LANSOPRAZOLE [Concomitant]
     Route: 048
  2. LOSARTAN POSTASSIUM [Concomitant]
     Route: 048
  3. TAMSULOSIN HCL [Concomitant]
     Route: 048
  4. INDAPAMIDE [Concomitant]
     Route: 048
  5. PYRIDOXINE HCL [Concomitant]
     Route: 048
     Dates: start: 20060725
  6. SIMVASTATIN [Concomitant]
     Route: 048
  7. BISOPROLOL [Concomitant]
     Route: 048
  8. HUMULIN INSULIN [Suspect]
     Route: 058
  9. FLUOROURACIL [Suspect]
     Dosage: 400 MG/M2 BOLUS FOLLOWED BY A 46 HOUR INFUSION OF 2400 MG/M2
     Route: 042
     Dates: start: 20061124, end: 20061125
  10. CETUXIMAB [Suspect]
     Dosage: 400 MG/M2 LOADING DOSE FOLLOWED BY A WEEKLY INFUSION OF 250 MG/M2
     Route: 041
     Dates: start: 20061201, end: 20061201
  11. OXALIPLATIN [Suspect]
     Indication: COLORECTAL CANCER METASTATIC
     Dosage: 85 MG/M2 IV OVER 2 HOURS
     Route: 041
     Dates: start: 20061124, end: 20061124

REACTIONS (3)
  - BLINDNESS [None]
  - NIGHT SWEATS [None]
  - TRANSIENT ISCHAEMIC ATTACK [None]
